FAERS Safety Report 9288002 (Version 1)
Quarter: 2013Q2

REPORT INFORMATION
  Report Type: Spontaneous
  Country: DE (occurrence: None)
  Receive Date: 20130506
  Receipt Date: 20130506
  Transmission Date: 20140414
  Serious: Yes (Other)
  Sender: FDA-Public Use
  Company Number: 1305-570

PATIENT
  Age: 75 Year
  Sex: Male

DRUGS (4)
  1. EYLEA [Suspect]
     Indication: AGE-RELATED MACULAR DEGENERATION
     Route: 031
     Dates: start: 20130326, end: 20130326
  2. CARNACULIN [KALLIDINOGENASE] (KALLIDINOGENASE) (TABLET) [Concomitant]
  3. ADONA (CARBAZOCHROME SODIUM SULFONATE) (TABLET) [Concomitant]
  4. CRAVIT (LEVOFLOXACIN) (EYE DROPS) [Concomitant]

REACTIONS (1)
  - Vitreous haemorrhage [None]
